FAERS Safety Report 10064547 (Version 1)
Quarter: 2014Q2

REPORT INFORMATION
  Report Type: Spontaneous
  Country: US (occurrence: None)
  Receive Date: 20140407
  Receipt Date: 20140407
  Transmission Date: 20141212
  Serious: Yes (Other)
  Sender: FDA-Public Use
  Company Number: None

PATIENT
  Age: 2 Year
  Sex: Female

DRUGS (1)
  1. VIMPAT [Suspect]
     Indication: EPILEPSY
     Dates: start: 20140322, end: 20140402

REACTIONS (11)
  - Vomiting [None]
  - Unresponsive to stimuli [None]
  - Eye movement disorder [None]
  - Rash pustular [None]
  - Rash erythematous [None]
  - Mental status changes [None]
  - Overdose [None]
  - Lethargy [None]
  - Balance disorder [None]
  - Hunger [None]
  - Loss of consciousness [None]
